FAERS Safety Report 8001372-1 (Version None)
Quarter: 2011Q4

REPORT INFORMATION
  Report Type: 
  Country: None (occurrence: None)
  Receive Date: 20111222
  Receipt Date: 20111216
  Transmission Date: 20120403
  Serious: Yes (Other)
  Sender: FDA-Public Use
  Company Number: US-PFIZER INC-2011307594

PATIENT
  Sex: Male
  Weight: 92.971 kg

DRUGS (4)
  1. ASPIRIN [Concomitant]
     Indication: CARDIAC DISORDER
     Dosage: UNK
  2. TOVIAZ [Suspect]
     Indication: NOCTURIA
     Dosage: 4 MG, UNK
     Route: 048
     Dates: start: 20111201, end: 20111201
  3. SIMVASTATIN [Concomitant]
     Indication: CARDIAC DISORDER
     Dosage: UNK
  4. TOVIAZ [Suspect]
     Dosage: 8 MG, UNK
     Dates: start: 20111201, end: 20111207

REACTIONS (1)
  - ATRIAL FIBRILLATION [None]
